FAERS Safety Report 6343106-2 (Version None)
Quarter: 2009Q3

REPORT INFORMATION
  Report Type: 
  Country: None (occurrence: None)
  Receive Date: 20090908
  Receipt Date: 20090828
  Transmission Date: 20100115
  Serious: Yes (Hospitalization, Other)
  Sender: FDA-Public Use
  Company Number: US-BAYER-200930576NA

PATIENT
  Age: 44 Year
  Sex: Female

DRUGS (6)
  1. OCELLA [Suspect]
     Indication: PAIN
     Dates: start: 20090621, end: 20090625
  2. LAMICTAL [Concomitant]
  3. KLONOPIN [Concomitant]
  4. WELLBUTRIN XL [Concomitant]
  5. NEXIUM [Concomitant]
  6. ZOCOR [Concomitant]

REACTIONS (7)
  - CHEST PAIN [None]
  - DYSPNOEA [None]
  - FIBRIN D DIMER INCREASED [None]
  - OFF LABEL USE [None]
  - PAIN IN EXTREMITY [None]
  - PULMONARY THROMBOSIS [None]
  - THROMBOPHLEBITIS SUPERFICIAL [None]
